FAERS Safety Report 4735522-7 (Version None)
Quarter: 2005Q3

REPORT INFORMATION
  Report Type: 
  Country: None (occurrence: None)
  Receive Date: 20050801
  Receipt Date: 20050801
  Transmission Date: 20060218
  Serious: Yes (Hospitalization)
  Sender: FDA-Public Use
  Company Number: None

PATIENT
  Age: 47 Year
  Sex: Male
  Weight: 141 kg

DRUGS (1)
  1. WARFARIN 5 MG [Suspect]
     Indication: ATRIAL FIBRILLATION
     Dosage: 12.5 MG MWF / 10MG ROW
     Dates: start: 20020101, end: 20050101

REACTIONS (8)
  - ABDOMINAL PAIN [None]
  - ASTHENIA [None]
  - DIZZINESS [None]
  - DUODENAL ULCER [None]
  - GASTROENTERITIS HELICOBACTER [None]
  - HAEMATOCRIT DECREASED [None]
  - MELAENA [None]
  - SELF-MEDICATION [None]
